FAERS Safety Report 15454764 (Version 2)
Quarter: 2019Q1

REPORT INFORMATION
  Report Type: Spontaneous
  Country: JP (occurrence: JP)
  Receive Date: 20181002
  Receipt Date: 20190130
  Transmission Date: 20190417
  Serious: Yes (Hospitalization)
  Sender: FDA-Public Use
  Company Number: JP-EISAI MEDICAL RESEARCH-EC-2018-045724

PATIENT
  Age: 71 Year
  Sex: Male
  Weight: 66 kg

DRUGS (3)
  1. LENVIMA [Suspect]
     Active Substance: LENVATINIB
     Route: 048
     Dates: start: 20180817, end: 20180914
  2. LENVIMA [Suspect]
     Active Substance: LENVATINIB
     Indication: HEPATOCELLULAR CARCINOMA
     Route: 048
     Dates: start: 20180719, end: 20180731
  3. LENVIMA [Suspect]
     Active Substance: LENVATINIB
     Route: 048
     Dates: start: 20180801, end: 20180816

REACTIONS (2)
  - Decreased appetite [Recovered/Resolved]
  - Hyperammonaemia [Recovered/Resolved]

NARRATIVE: CASE EVENT DATE: 20180725
